FAERS Safety Report 7586440-0 (Version None)
Quarter: 2011Q3

REPORT INFORMATION
  Report Type: 
  Country: None (occurrence: None)
  Receive Date: 20110701
  Receipt Date: 20110629
  Transmission Date: 20111222
  Serious: Yes (Death)
  Sender: FDA-Public Use
  Company Number: B0729388A

PATIENT

DRUGS (2)
  1. ELTROMBOPAG [Suspect]
     Indication: IDIOPATHIC THROMBOCYTOPENIC PURPURA
     Dosage: 50MG PER DAY
     Route: 048
     Dates: start: 20110501, end: 20110501
  2. ELTROMBOPAG [Suspect]
     Dosage: 75MG PER DAY
     Route: 048
     Dates: start: 20110501, end: 20110601

REACTIONS (1)
  - DEATH [None]
